FAERS Safety Report 9084156 (Version 1)
Quarter: 2013Q1

REPORT INFORMATION
  Report Type: Spontaneous
  Country: US (occurrence: US)
  Receive Date: 20130131
  Receipt Date: 20130131
  Transmission Date: 20140127
  Serious: No
  Sender: FDA-Public Use
  Company Number: US-PFIZER INC-2012293990

PATIENT
  Age: 58 Year
  Sex: Female
  Weight: 54.42 kg

DRUGS (2)
  1. ATORVASTATIN CALCIUM [Suspect]
     Indication: BLOOD CHOLESTEROL INCREASED
     Dosage: 10 MG, ALTERNATE DAY/A TABLET EVERY OTHER NIGHT
     Route: 048
     Dates: start: 201203
  2. LEVOTHYROXINE SODIUM [Suspect]
     Indication: THYROIDECTOMY
     Dosage: 0.88 MG 5 DAYS/WEEK AND 0.100 MG 2DAYS/WEEK

REACTIONS (3)
  - Wrong technique in drug usage process [Unknown]
  - Tablet physical issue [Unknown]
  - Dysphagia [Unknown]
